FAERS Safety Report 6627121-7 (Version None)
Quarter: 2010Q1

REPORT INFORMATION
  Report Type: 
  Country: None (occurrence: None)
  Receive Date: 20100311
  Receipt Date: 20090921
  Transmission Date: 20100710
  Serious: No
  Sender: FDA-Public Use
  Company Number: A0808249A

PATIENT
  Age: 49 Year
  Sex: Male

DRUGS (2)
  1. NICOTINE POLACRILEX [Suspect]
     Dates: start: 20090919
  2. NICODERM CQ [Suspect]

REACTIONS (6)
  - BLOOD PRESSURE INCREASED [None]
  - DIZZINESS [None]
  - NICOTINE DEPENDENCE [None]
  - OROPHARYNGEAL PAIN [None]
  - TENSION [None]
  - THROAT IRRITATION [None]
